FAERS Safety Report 14489984 (Version 1)
Quarter: 2018Q1

REPORT INFORMATION
  Report Type: Spontaneous
  Country: US (occurrence: US)
  Receive Date: 20180206
  Receipt Date: 20180206
  Transmission Date: 20180509
  Serious: Yes (Other)
  Sender: FDA-Public Use
  Company Number: US-ROCHE-2063041

PATIENT
  Age: 47 Year
  Sex: Female
  Weight: 62.65 kg

DRUGS (2)
  1. PEGASYS [Suspect]
     Active Substance: PEGINTERFERON ALFA-2A
     Indication: HEPATITIS C
     Dosage: CLINICAL TRIAL;ONGOING: NO
     Route: 065
     Dates: start: 2014
  2. GABAPENTIN. [Concomitant]
     Active Substance: GABAPENTIN
     Route: 065

REACTIONS (13)
  - Hepatic cirrhosis [Not Recovered/Not Resolved]
  - Cardiac disorder [Not Recovered/Not Resolved]
  - Arthralgia [Not Recovered/Not Resolved]
  - Mental disorder [Not Recovered/Not Resolved]
  - Diverticulitis [Not Recovered/Not Resolved]
  - Gastrointestinal disorder [Not Recovered/Not Resolved]
  - Weight decreased [Not Recovered/Not Resolved]
  - Coagulation time shortened [Not Recovered/Not Resolved]
  - Eye disorder [Not Recovered/Not Resolved]
  - Loss of consciousness [Not Recovered/Not Resolved]
  - Lung disorder [Not Recovered/Not Resolved]
  - Adrenal neoplasm [Not Recovered/Not Resolved]
  - Drug hypersensitivity [Not Recovered/Not Resolved]
